FAERS Safety Report 7834708-2 (Version None)
Quarter: 2011Q4

REPORT INFORMATION
  Report Type: 
  Country: None (occurrence: None)
  Receive Date: 20111020
  Receipt Date: 20111006
  Transmission Date: 20120403
  Serious: Yes (Disabling)
  Sender: FDA-Public Use
  Company Number: 2011MA014827

PATIENT
  Age: 67 Year
  Sex: Female

DRUGS (6)
  1. INDAPAMIDE [Concomitant]
  2. BACLOFEN [Concomitant]
  3. ADCAL-D3 [Concomitant]
  4. RAMIPRIL [Suspect]
     Indication: HYPERTENSION
     Dosage: 5 MG;BID;PO
     Route: 048
     Dates: start: 20110407
  5. ZOPICLONE [Concomitant]
  6. STRONTIUM RANELATE [Concomitant]

REACTIONS (2)
  - ONYCHOMYCOSIS [None]
  - NAIL DISORDER [None]
